FAERS Safety Report 9966184 (Version 2)
Quarter: 2014Q1

REPORT INFORMATION
  Report Type: Report from Study
  Country: US (occurrence: US)
  Receive Date: 20140305
  Receipt Date: 20140305
  Transmission Date: 20141002
  Serious: No
  Sender: FDA-Public Use
  Company Number: US-ABBVIE-13P-163-1101630-00

PATIENT
  Age: 37 Year
  Sex: Female

DRUGS (8)
  1. HUMIRA [Suspect]
     Indication: CROHN^S DISEASE
     Dates: start: 20130330
  2. QUASENSE [Concomitant]
     Indication: CONTRACEPTION
  3. OMEPRAZOLE [Concomitant]
     Indication: GASTRIC DISORDER
  4. MVI [Concomitant]
     Indication: PRODUCT USED FOR UNKNOWN INDICATION
     Dosage: 1 DAILY
  5. APRISO [Concomitant]
  6. TRAZODONE [Concomitant]
     Indication: SLEEP DISORDER
     Dosage: AT BEDTIME
  7. GABAPENTIN [Concomitant]
     Indication: PAIN
  8. ADVIL [Concomitant]
     Indication: PAIN
     Dosage: 400-600 MG WHEN IN PAIN

REACTIONS (6)
  - Frequent bowel movements [Not Recovered/Not Resolved]
  - Injection site reaction [Recovered/Resolved]
  - Abdominal pain [Recovered/Resolved]
  - Injection site pain [Recovered/Resolved]
  - Drug ineffective [Not Recovered/Not Resolved]
  - Injection site pruritus [Not Recovered/Not Resolved]
